FAERS Safety Report 25522173 (Version 2)
Quarter: 2025Q4

REPORT INFORMATION
  Report Type: Spontaneous
  Country: JP (occurrence: JP)
  Receive Date: 20250707
  Receipt Date: 20251003
  Transmission Date: 20260117
  Serious: Yes (Hospitalization, Other)
  Sender: GLAXOSMITHKLINE
  Company Number: JP-GSK-JP2025JPN082065

PATIENT
  Age: 45 Year
  Sex: Male
  Weight: 86.2 kg

DRUGS (10)
  1. DAPRODUSTAT [Suspect]
     Active Substance: DAPRODUSTAT
     Indication: Nephrogenic anaemia
     Dosage: UNK
  2. TENAPANOR HYDROCHLORIDE [Suspect]
     Active Substance: TENAPANOR HYDROCHLORIDE
     Indication: Hyperphosphataemia
     Dosage: 5 MG, BID
  3. TENAPANOR HYDROCHLORIDE [Suspect]
     Active Substance: TENAPANOR HYDROCHLORIDE
     Dosage: 10 MG, BID
  4. CALCIUM CARBONATE [Concomitant]
     Active Substance: CALCIUM CARBONATE
     Indication: Hyperphosphataemia
     Dosage: 1.5 G, QD
  5. SUCROFERRIC OXYHYDROXIDE [Concomitant]
     Active Substance: SUCROFERRIC OXYHYDROXIDE
     Indication: Hyperphosphataemia
     Dosage: 1500 MG, QD
  6. LANTHANUM CARBONATE [Concomitant]
     Active Substance: LANTHANUM CARBONATE
     Indication: Hyperphosphataemia
     Dosage: 1.5 G, QD
  7. Hornel [Concomitant]
     Indication: Hyperparathyroidism secondary
     Dosage: 0.3 ?G, QD
  8. EVOCALCET [Concomitant]
     Active Substance: EVOCALCET
     Indication: Hyperparathyroidism secondary
     Dosage: 2 MG, QD
  9. ENTRESTO [Concomitant]
     Active Substance: SACUBITRIL\VALSARTAN
     Indication: Hypertension
     Dosage: UNK
  10. FEBUXOSTAT [Concomitant]
     Active Substance: FEBUXOSTAT
     Indication: Hyperuricaemia
     Dosage: UNK

REACTIONS (6)
  - Abdominal pain [Unknown]
  - Inflammation [Unknown]
  - Peritoneal cloudy effluent [Unknown]
  - Peritonitis [Recovered/Resolved]
  - Peritoneal dialysis complication [Recovered/Resolved]
  - Inadequate peritoneal dialysis [Unknown]

NARRATIVE: CASE EVENT DATE: 20250411
